FAERS Safety Report 7332477-6 (Version None)
Quarter: 2011Q1

REPORT INFORMATION
  Report Type: 
  Country: None (occurrence: None)
  Receive Date: 20110304
  Receipt Date: 20110224
  Transmission Date: 20110831
  Serious: Yes (Death)
  Sender: FDA-Public Use
  Company Number: JP-BRISTOL-MYERS SQUIBB COMPANY-15587561

PATIENT
  Age: 55 Year
  Sex: Male

DRUGS (3)
  1. ABILIFY [Suspect]
     Indication: SCHIZOPHRENIA
     Route: 048
     Dates: start: 20071101
  2. RISPERDAL [Suspect]
     Indication: SCHIZOPHRENIA
     Dosage: 1DF=1 TO 2MG
     Route: 048
     Dates: start: 20071101
  3. SEROQUEL [Suspect]
     Indication: SCHIZOPHRENIA
     Dosage: 1DF=500 TO 600MG
     Route: 048
     Dates: start: 20071101

REACTIONS (1)
  - SUDDEN DEATH [None]
